FAERS Safety Report 14139932 (Version 1)
Quarter: 2017Q4

REPORT INFORMATION
  Report Type: Spontaneous
  Country: US (occurrence: US)
  Receive Date: 20171030
  Receipt Date: 20171030
  Transmission Date: 20180321
  Serious: No
  Sender: FDA-Public Use
  Company Number: US-B.I. PHARMACEUTICALS,INC./RIDGEFIELD-2017-BI-057441

PATIENT
  Age: 92 Year
  Sex: Male

DRUGS (1)
  1. OFEV [Suspect]
     Active Substance: NINTEDANIB
     Indication: IDIOPATHIC PULMONARY FIBROSIS
     Dosage: FORM STRENGTH: 150 MG;? ADMINISTRATION CORRECT? NR?ACTION(S) TAKEN WITH PRODUCT: NOT REPORTED
     Route: 048
     Dates: start: 201710

REACTIONS (4)
  - Orthostatic hypotension [Unknown]
  - Pyrexia [Unknown]
  - Fall [Unknown]
  - Mental status changes [Unknown]

NARRATIVE: CASE EVENT DATE: 201710
